FAERS Safety Report 8140722-2 (Version None)
Quarter: 2012Q1

REPORT INFORMATION
  Report Type: 
  Country: None (occurrence: None)
  Receive Date: 20120216
  Receipt Date: 20120207
  Transmission Date: 20120608
  Serious: Yes (Death, Hospitalization, Other)
  Sender: FDA-Public Use
  Company Number: US-BAXTER-2011BH040322

PATIENT
  Sex: Male

DRUGS (1)
  1. DIANEAL [Suspect]
     Indication: PERITONEAL DIALYSIS
     Route: 033
     Dates: end: 20120124

REACTIONS (6)
  - HIP FRACTURE [None]
  - BEDRIDDEN [None]
  - WOUND [None]
  - MYOCARDIAL INFARCTION [None]
  - DEATH [None]
  - RENAL FAILURE [None]
